FAERS Safety Report 22933323 (Version 3)
Quarter: 2024Q4

REPORT INFORMATION
  Report Type: Report from Study
  Country: US (occurrence: US)
  Receive Date: 20230912
  Receipt Date: 20241016
  Transmission Date: 20250114
  Serious: Yes (Hospitalization, Other)
  Sender: SANDOZ
  Company Number: US-002147023-NVSC2021US257756

PATIENT
  Age: 18 Year
  Sex: Female
  Weight: 53.8 kg

DRUGS (16)
  1. TREPROSTINIL [Suspect]
     Active Substance: TREPROSTINIL
     Dosage: 80 NG/KG/MIN, CONT
     Route: 058
     Dates: start: 20211008
  2. TREPROSTINIL [Suspect]
     Active Substance: TREPROSTINIL
     Indication: Pulmonary arterial hypertension
     Dosage: 52.2 NG/KG/MIN, CONT (STRENGTH: 5 MILLIGRAM PER MILLILITRE)
     Route: 058
     Dates: start: 20211008
  3. TREPROSTINIL [Suspect]
     Active Substance: TREPROSTINIL
     Dosage: 52.2 NG/KG/MIN, CONT (STRENGTH: 5 MILLIGRAM PER MILLILITRE)
     Route: 058
  4. TREPROSTINIL [Suspect]
     Active Substance: TREPROSTINIL
     Dosage: 69.4 NG/KG/MIN, CONT (STRENGTH: 10 MILLIGRAM PER MILLILITRE)
     Route: 058
  5. TREPROSTINIL [Suspect]
     Active Substance: TREPROSTINIL
     Dosage: 83.3 NG/KG/ MIN, CONT (STRENGTH:10 MG/ML)
     Route: 058
  6. TREPROSTINIL [Suspect]
     Active Substance: TREPROSTINIL
     Dosage: 83.3 NG/KG/ MIN, CONT (STRENGTH:10 MG/ML),
     Route: 058
  7. TREPROSTINIL [Suspect]
     Active Substance: TREPROSTINIL
     Dosage: 83.3 NG/KG/ MIN (SUBCUT), CONT
     Route: 065
     Dates: start: 20211008
  8. TREPROSTINIL [Suspect]
     Active Substance: TREPROSTINIL
     Dosage: 83.3 NG/KG/ MIN, CONT (STRENGTH:10 MG/ML),
     Route: 058
  9. ACETAMINOPHEN [Concomitant]
     Active Substance: ACETAMINOPHEN
     Indication: Product used for unknown indication
     Dosage: UNK
     Route: 065
  10. ADVIL [Concomitant]
     Active Substance: IBUPROFEN
     Indication: Product used for unknown indication
     Dosage: UNK
     Route: 065
  11. AMBRISENTAN [Concomitant]
     Active Substance: AMBRISENTAN
     Indication: Product used for unknown indication
     Dosage: UNK
     Route: 065
  12. BOSENTAN [Concomitant]
     Active Substance: BOSENTAN
     Indication: Product used for unknown indication
     Dosage: UNK
     Route: 065
  13. PEPCID [Concomitant]
     Active Substance: FAMOTIDINE
     Indication: Product used for unknown indication
     Dosage: UNK
     Route: 065
  14. SILDENAFIL CITRATE [Concomitant]
     Active Substance: SILDENAFIL CITRATE
     Indication: Product used for unknown indication
     Dosage: UNK
     Route: 065
  15. TADALAFIL [Concomitant]
     Active Substance: TADALAFIL
     Indication: Product used for unknown indication
     Dosage: UNK
     Route: 065
  16. ZYRTEC [Concomitant]
     Active Substance: CETIRIZINE HYDROCHLORIDE
     Indication: Product used for unknown indication
     Dosage: UNK
     Route: 065

REACTIONS (20)
  - Pulmonary hypertensive crisis [Unknown]
  - Abdominal discomfort [Unknown]
  - Gastroenteritis viral [Unknown]
  - Syncope [Unknown]
  - Cardiac murmur [Unknown]
  - Respiration abnormal [Unknown]
  - Oxygen saturation decreased [Unknown]
  - Sinusitis [Unknown]
  - Ear infection [Unknown]
  - Urinary tract infection [Unknown]
  - Feeling abnormal [Unknown]
  - Pain in extremity [Unknown]
  - Dizziness [Unknown]
  - Infusion site swelling [Unknown]
  - Injection site discomfort [Unknown]
  - Injection site reaction [Unknown]
  - Infusion site pain [Unknown]
  - Infusion site infection [Unknown]
  - Fatigue [Unknown]
  - Pain in jaw [Unknown]

NARRATIVE: CASE EVENT DATE: 20230522
